FAERS Safety Report 25236722 (Version 1)
Quarter: 2025Q2

REPORT INFORMATION
  Report Type: Spontaneous
  Country: US (occurrence: US)
  Receive Date: 20250424
  Receipt Date: 20250424
  Transmission Date: 20250717
  Serious: No
  Sender: MERCK SHARP & DOHME LLC
  Company Number: US-009507513-2271172

PATIENT
  Age: 36 Year
  Sex: Male

DRUGS (8)
  1. POSACONAZOLE [Suspect]
     Active Substance: POSACONAZOLE
     Indication: Aspergillus infection
     Dosage: 300 MG TWICE DAILY
     Route: 048
  2. RIFABUTIN [Suspect]
     Active Substance: RIFABUTIN
     Indication: Meningitis tuberculous
     Dosage: 450 MG DAILY
     Route: 065
  3. AMPHOTERICIN B [Concomitant]
     Active Substance: AMPHOTERICIN B
     Indication: Aspergillus infection
     Route: 042
  4. RIFAMPIN [Concomitant]
     Active Substance: RIFAMPIN
     Route: 042
  5. VORICONAZOLE [Concomitant]
     Active Substance: VORICONAZOLE
     Indication: Aspergillus infection
  6. ISAVUCONAZOLE [Concomitant]
     Active Substance: ISAVUCONAZOLE
     Indication: Aspergillus infection
  7. LEVOFLOXACIN [Concomitant]
     Active Substance: LEVOFLOXACIN
     Indication: Meningitis bacterial
     Dosage: 750 MG DAILY
     Route: 042
  8. ISONIAZID [Concomitant]
     Active Substance: ISONIAZID
     Dosage: 1200 MG (15 MG/KG) DAILY),
     Route: 042

REACTIONS (2)
  - Drug interaction [Unknown]
  - Off label use [Unknown]
